FAERS Safety Report 6475088-7 (Version None)
Quarter: 2009Q4

REPORT INFORMATION
  Report Type: 
  Country: None (occurrence: None)
  Receive Date: 20091204
  Receipt Date: 20090623
  Transmission Date: 20100525
  Serious: Yes (Hospitalization, Other)
  Sender: FDA-Public Use
  Company Number: US-ELI_LILLY_AND_COMPANY-US200903004364

PATIENT
  Age: 55 Year
  Sex: Male

DRUGS (12)
  1. HUMALOG [Suspect]
     Dosage: UNK, AS NEEDED
     Route: 058
  2. GLUCAGON [Suspect]
     Indication: BLOOD GLUCOSE DECREASED
     Dosage: UNK, AS NEEDED
  3. DIOVAN [Concomitant]
     Indication: HYPERTENSION
     Dates: start: 20050101
  4. TRILEPTAL [Concomitant]
     Indication: CONVULSION
     Dosage: 150 MG, DAILY (1/D)
     Dates: start: 20040101
  5. HYDROCHLOROTHIAZIDE [Concomitant]
     Indication: HYPERTENSION
     Dosage: 25 MG, QOD
  6. HYDROCHLOROTHIAZIDE [Concomitant]
     Dosage: 25 MG, DAILY (1/D)
  7. PRILOSEC [Concomitant]
     Indication: GASTROOESOPHAGEAL REFLUX DISEASE
  8. TOPAMAX [Concomitant]
     Indication: NEUROPATHY PERIPHERAL
  9. PROPOXYPHENE HCL CAP [Concomitant]
  10. NAPROXEN [Concomitant]
  11. TRAZODONE [Concomitant]
  12. PROTONIX [Concomitant]

REACTIONS (22)
  - ACOUSTIC NEUROMA [None]
  - ADVERSE REACTION [None]
  - BLINDNESS [None]
  - BLOOD GLUCOSE INCREASED [None]
  - BRAIN NEOPLASM [None]
  - DAWN PHENOMENON [None]
  - DEAFNESS UNILATERAL [None]
  - DIABETIC RETINOPATHY [None]
  - EXPIRED DRUG ADMINISTERED [None]
  - GASTROOESOPHAGEAL REFLUX DISEASE [None]
  - HYPERTENSION [None]
  - HYPOGLYCAEMIC SEIZURE [None]
  - HYPOGLYCAEMIC UNCONSCIOUSNESS [None]
  - HYPOTENSION [None]
  - INSOMNIA [None]
  - JOINT INJURY [None]
  - NEUROPATHY PERIPHERAL [None]
  - PAIN [None]
  - PROSTATE CANCER [None]
  - ROTATOR CUFF SYNDROME [None]
  - SLEEP DISORDER [None]
  - THERAPEUTIC RESPONSE PROLONGED [None]
